FAERS Safety Report 8996030 (Version 1)
Quarter: 2013Q1

REPORT INFORMATION
  Report Type: Spontaneous
  Country: US (occurrence: US)
  Receive Date: 20130103
  Receipt Date: 20130103
  Transmission Date: 20140127
  Serious: No
  Sender: FDA-Public Use
  Company Number: US-ABBOTT-12P-163-0933870-00

PATIENT
  Sex: Female

DRUGS (2)
  1. SYNTHROID [Suspect]
     Indication: HYPOTHYROIDISM
     Dosage: DAILY DOSE 25 MCG
  2. SYNTHROID [Suspect]
     Indication: HYPOTHYROIDISM
     Dosage: DAILY DOSE 175 MCG

REACTIONS (7)
  - Chest discomfort [Unknown]
  - Vomiting [Unknown]
  - Diarrhoea [Unknown]
  - Pallor [Unknown]
  - Hyperhidrosis [Unknown]
  - Hot flush [Unknown]
  - Panic reaction [Unknown]
